FAERS Safety Report 12953546 (Version 3)
Quarter: 2016Q4

REPORT INFORMATION
  Report Type: Spontaneous
  Country: US (occurrence: US)
  Receive Date: 20161118
  Receipt Date: 20161215
  Transmission Date: 20170207
  Serious: Yes (Hospitalization, Other)
  Sender: FDA-Public Use
  Company Number: US-BAXTER-2016BAX056001

PATIENT
  Age: 37 Year
  Sex: Female

DRUGS (1)
  1. DIANEAL LOW CALCIUM PERITONEAL DIALYSIS SOLUTION WITH DEXTROSE [Suspect]
     Active Substance: CALCIUM CHLORIDE\DEXTROSE\MAGNESIUM CHLORIDE\SODIUM CHLORIDE\SODIUM LACTATE
     Indication: PERITONEAL DIALYSIS
     Dosage: 4 CYCLES NIGHTLY 10000 ML
     Route: 033
     Dates: start: 2015, end: 20161111

REACTIONS (3)
  - Peritonitis bacterial [Recovering/Resolving]
  - Device malfunction [Unknown]
  - Device dislocation [Unknown]

NARRATIVE: CASE EVENT DATE: 20161025
